FAERS Safety Report 24863581 (Version 1)
Quarter: 2025Q1

REPORT INFORMATION
  Report Type: Spontaneous
  Country: US (occurrence: US)
  Receive Date: 20250120
  Receipt Date: 20250120
  Transmission Date: 20250408
  Serious: No
  Sender: Phathom Pharmaceuticals
  Company Number: US-PHATHOM PHARMACEUTICALS INC.-2024PHT01552

PATIENT
  Age: 57 Year
  Sex: Female

DRUGS (8)
  1. VOQUEZNA [Suspect]
     Active Substance: VONOPRAZAN FUMARATE
     Indication: Gastrooesophageal reflux disease
     Dosage: 20 MG, 1X/DAY
     Route: 048
     Dates: start: 20241118, end: 20241208
  2. REPATHA [Concomitant]
     Active Substance: EVOLOCUMAB
  3. ASPIRIN [Concomitant]
     Active Substance: ASPIRIN
  4. VITAMIN D3 [Concomitant]
     Active Substance: CHOLECALCIFEROL
  5. VITAMIN B12 [Concomitant]
     Active Substance: CYANOCOBALAMIN
  6. FISH OIL [Concomitant]
     Active Substance: FISH OIL
  7. ESTROGENS [Concomitant]
     Active Substance: ESTROGENS
  8. PEPCID [Concomitant]
     Active Substance: FAMOTIDINE

REACTIONS (2)
  - Urine output decreased [Recovered/Resolved]
  - Drug ineffective [Recovered/Resolved]

NARRATIVE: CASE EVENT DATE: 20240101
